FAERS Safety Report 22289466 (Version 1)
Quarter: 2023Q2

REPORT INFORMATION
  Report Type: Spontaneous
  Country: US (occurrence: None)
  Receive Date: 20230505
  Receipt Date: 20230505
  Transmission Date: 20230721
  Serious: No
  Sender: FDA-Public Use
  Company Number: None

PATIENT
  Age: 58 Year
  Sex: Male
  Weight: 7667.07 kg

DRUGS (4)
  1. ABIRATERONE [Suspect]
     Active Substance: ABIRATERONE
     Indication: Food allergy
     Dosage: FREQUENCY : DAILY;?
     Route: 048
  2. CALCIUM [Concomitant]
     Active Substance: CALCIUM
  3. PREDNISONE [Concomitant]
     Active Substance: PREDNISONE
  4. TAMSULOSIN [Concomitant]
     Active Substance: TAMSULOSIN

REACTIONS (8)
  - Urticaria [None]
  - Diarrhoea [None]
  - Vomiting [None]
  - Dizziness [None]
  - Syncope [None]
  - Throat tightness [None]
  - Food allergy [None]
  - Allergic reaction to excipient [None]
